FAERS Safety Report 7231092-2 (Version None)
Quarter: 2011Q1

REPORT INFORMATION
  Report Type: 
  Country: None (occurrence: None)
  Receive Date: 20110118
  Receipt Date: 20101206
  Transmission Date: 20110831
  Serious: Yes (Other)
  Sender: FDA-Public Use
  Company Number: PHHY2010US84301

PATIENT
  Age: 56 Year
  Sex: Male

DRUGS (1)
  1. DIOVAN [Suspect]
     Indication: HYPERTENSION
     Dosage: 160 MG, UNK

REACTIONS (11)
  - EPISTAXIS [None]
  - WEIGHT DECREASED [None]
  - ANXIETY [None]
  - RETCHING [None]
  - IRRITABILITY [None]
  - COUGH [None]
  - POLLAKIURIA [None]
  - CONTUSION [None]
  - GAIT DISTURBANCE [None]
  - DIARRHOEA [None]
  - CHOKING [None]
